FAERS Safety Report 8920817 (Version 4)
Quarter: 2013Q1

REPORT INFORMATION
  Report Type: Spontaneous
  Country: US (occurrence: US)
  Receive Date: 20121122
  Receipt Date: 20130304
  Transmission Date: 20140127
  Serious: Yes (Disabling)
  Sender: FDA-Public Use
  Company Number: US-PFIZER INC-2012287992

PATIENT
  Age: 24 Year
  Sex: Female
  Weight: 54.9 kg

DRUGS (4)
  1. DEPO-PROVERA [Suspect]
     Indication: CONTRACEPTION
     Dosage: 150 MG, EVERY 3 MONTHS
     Route: 030
     Dates: start: 200201, end: 200708
  2. SERTRALINE [Concomitant]
     Dosage: 200 MG, 2X/DAY
  3. BENZATROPINE [Concomitant]
     Dosage: 0.5 MG, DAILY
  4. PERIDEX [Concomitant]
     Dosage: 15 ML, 2X/DAY(30 SECONDS TWICE A DAY)

REACTIONS (9)
  - Teeth brittle [Not Recovered/Not Resolved]
  - Tooth loss [Not Recovered/Not Resolved]
  - Tooth erosion [Not Recovered/Not Resolved]
  - Dental caries [Not Recovered/Not Resolved]
  - Tooth fracture [Unknown]
  - Toothache [Unknown]
  - Dysgeusia [Unknown]
  - Sensitivity of teeth [Unknown]
  - Chills [Unknown]
